FAERS Safety Report 25421936 (Version 1)
Quarter: 2025Q2

REPORT INFORMATION
  Report Type: Spontaneous
  Country: SE (occurrence: SE)
  Receive Date: 20250611
  Receipt Date: 20250611
  Transmission Date: 20250716
  Serious: Yes (Other)
  Sender: ORGANON
  Company Number: SE-ORGANON-O2506SWE000729

PATIENT
  Sex: Female

DRUGS (4)
  1. NEXPLANON [Suspect]
     Active Substance: ETONOGESTREL
     Indication: Contraception
     Route: 059
  2. NEXPLANON [Suspect]
     Active Substance: ETONOGESTREL
     Route: 059
  3. NEXPLANON [Suspect]
     Active Substance: ETONOGESTREL
     Route: 059
  4. NEXPLANON [Suspect]
     Active Substance: ETONOGESTREL
     Indication: Contraception
     Route: 059

REACTIONS (2)
  - Vaginal haemorrhage [Not Recovered/Not Resolved]
  - Amenorrhoea [Recovered/Resolved]
